FAERS Safety Report 20622486 (Version 7)
Quarter: 2022Q2

REPORT INFORMATION
  Report Type: Spontaneous
  Country: PL (occurrence: PL)
  Receive Date: 20220322
  Receipt Date: 20220426
  Transmission Date: 20220721
  Serious: Yes (Hospitalization, Other)
  Sender: FDA-Public Use
  Company Number: PL-NOVARTISPH-NVSC2022PL064106

PATIENT
  Age: 68 Year
  Sex: Female

DRUGS (1)
  1. METHOTREXATE [Suspect]
     Active Substance: METHOTREXATE
     Indication: Arthritis
     Dosage: 15 MG, QD (THE PATIENT WAS TAKING MTX EVERY DAY FOR THE NEXT 11 DAYS)
     Route: 065

REACTIONS (3)
  - Mouth ulceration [Recovering/Resolving]
  - Accidental overdose [Unknown]
  - Inappropriate schedule of product administration [Unknown]
